FAERS Safety Report 9023513 (Version 1)
Quarter: 2013Q1

REPORT INFORMATION
  Report Type: Spontaneous
  Country: IL (occurrence: IL)
  Receive Date: 20130121
  Receipt Date: 20130121
  Transmission Date: 20140127
  Serious: Yes (Death, Hospitalization)
  Sender: FDA-Public Use
  Company Number: IL-ABBOTT-12P-082-0936464-00

PATIENT
  Age: 83 Year
  Sex: Male

DRUGS (1)
  1. DUODOPA [Suspect]
     Indication: PARKINSON^S DISEASE
     Dosage: 2.9ML/HR FOR 18 HOURS
     Dates: start: 20111026

REACTIONS (3)
  - Hip fracture [Unknown]
  - Fall [Unknown]
  - Death [Fatal]
